FAERS Safety Report 6020077-X (Version None)
Quarter: 2008Q4

REPORT INFORMATION
  Report Type: 
  Country: None (occurrence: None)
  Receive Date: 20081226
  Receipt Date: 20081216
  Transmission Date: 20090506
  Serious: Yes (Other)
  Sender: FDA-Public Use
  Company Number: US-BAYER-200814881BCC

PATIENT
  Age: 74 Year
  Sex: Female
  Weight: 50 kg

DRUGS (3)
  1. PHILLIPS' MILK OF MAGNESIA LIQUID ORIGINAL [Suspect]
     Indication: CONSTIPATION
     Route: 048
     Dates: start: 20081001
  2. TOPROL-XL [Concomitant]
  3. LIPITOR [Concomitant]

REACTIONS (3)
  - DEAFNESS UNILATERAL [None]
  - DRY THROAT [None]
  - INCREASED UPPER AIRWAY SECRETION [None]
